FAERS Safety Report 23328626 (Version 1)
Quarter: 2023Q4

REPORT INFORMATION
  Report Type: Report from Study
  Country: US (occurrence: US)
  Receive Date: 20231221
  Receipt Date: 20231221
  Transmission Date: 20240109
  Serious: No
  Sender: FDA-Public Use
  Company Number: US-ALXN-A202307561

PATIENT
  Sex: Male

DRUGS (2)
  1. ULTOMIRIS [Suspect]
     Active Substance: RAVULIZUMAB-CWVZ
     Indication: Myasthenia gravis
     Dosage: UNK
     Route: 065
  2. PROSTIGMIN [Suspect]
     Active Substance: NEOSTIGMINE BROMIDE
     Indication: Product used for unknown indication
     Dosage: UNK 2-3 PILLS, QD
     Route: 065

REACTIONS (5)
  - Dysphagia [Unknown]
  - Mastication disorder [Recovering/Resolving]
  - Therapeutic product effect delayed [Unknown]
  - Speech disorder [Not Recovered/Not Resolved]
  - Asthenia [Unknown]
